FAERS Safety Report 6325348-5 (Version None)
Quarter: 2009Q3

REPORT INFORMATION
  Report Type: 
  Country: None (occurrence: None)
  Receive Date: 20090824
  Receipt Date: 20090715
  Transmission Date: 20100115
  Serious: No
  Sender: FDA-Public Use
  Company Number: US-ABBOTT-09P-163-0585409-00

PATIENT
  Sex: Female

DRUGS (17)
  1. NIASPAN [Suspect]
     Indication: HIGH DENSITY LIPOPROTEIN DECREASED
     Dosage: DAILY AT BEDTIME
     Dates: start: 20090701
  2. NIASPAN [Suspect]
     Indication: BLOOD TRIGLYCERIDES INCREASED
  3. REGLAN [Concomitant]
     Indication: MUSCLE SPASMS
  4. METFORMIN HCL [Concomitant]
     Indication: DRUG USE FOR UNKNOWN INDICATION
  5. GLYBURIDE [Concomitant]
     Indication: DRUG USE FOR UNKNOWN INDICATION
  6. BACLOFEN [Concomitant]
     Indication: DRUG USE FOR UNKNOWN INDICATION
  7. DIAZEPAM [Concomitant]
     Indication: DRUG USE FOR UNKNOWN INDICATION
  8. SIMVASTATIN [Concomitant]
     Indication: DRUG USE FOR UNKNOWN INDICATION
  9. VIT B 12 [Concomitant]
     Indication: DRUG USE FOR UNKNOWN INDICATION
  10. VIT D [Concomitant]
     Indication: DRUG USE FOR UNKNOWN INDICATION
  11. VIT B COMPLEX WITH B3 [Concomitant]
     Indication: DRUG USE FOR UNKNOWN INDICATION
  12. VIT E [Concomitant]
     Indication: DRUG USE FOR UNKNOWN INDICATION
  13. VIT C [Concomitant]
     Indication: DRUG USE FOR UNKNOWN INDICATION
  14. CA [Concomitant]
     Indication: DRUG USE FOR UNKNOWN INDICATION
  15. FE [Concomitant]
     Indication: DRUG USE FOR UNKNOWN INDICATION
  16. FISH OIL [Concomitant]
     Indication: DRUG USE FOR UNKNOWN INDICATION
  17. FIBER-LAX [Concomitant]
     Indication: DRUG USE FOR UNKNOWN INDICATION

REACTIONS (9)
  - ASTHENIA [None]
  - BLOOD GLUCOSE ABNORMAL [None]
  - CONSTIPATION [None]
  - DIZZINESS [None]
  - FEELING COLD [None]
  - FLUSHING [None]
  - HIATUS HERNIA [None]
  - HYPERHIDROSIS [None]
  - WEIGHT INCREASED [None]
